FAERS Safety Report 16482873 (Version 1)
Quarter: 2019Q2

REPORT INFORMATION
  Report Type: Spontaneous
  Country: US (occurrence: US)
  Receive Date: 20190627
  Receipt Date: 20190627
  Transmission Date: 20190711
  Serious: No
  Sender: FDA-Public Use
  Company Number: US-BAYER-2019-122099

PATIENT
  Age: 85 Year
  Sex: Female

DRUGS (1)
  1. MIRALAX [Suspect]
     Active Substance: POLYETHYLENE GLYCOL 3350
     Indication: GASTROINTESTINAL DISORDER
     Dosage: TEASPOON IN A BOTTLE OF WATER
     Route: 048
     Dates: start: 20190625, end: 20190626

REACTIONS (2)
  - Incorrect dose administered [Unknown]
  - Product use issue [None]

NARRATIVE: CASE EVENT DATE: 20190626
